FAERS Safety Report 13666398 (Version 1)
Quarter: 2017Q2

REPORT INFORMATION
  Report Type: Spontaneous
  Country: US (occurrence: US)
  Receive Date: 20170619
  Receipt Date: 20170619
  Transmission Date: 20170830
  Serious: No
  Sender: FDA-Public Use
  Company Number: US-ROCHE-1271235

PATIENT
  Sex: Male

DRUGS (2)
  1. XELODA [Suspect]
     Active Substance: CAPECITABINE
     Indication: NASAL CAVITY CANCER
     Route: 065
     Dates: start: 20121102
  2. XELODA [Suspect]
     Active Substance: CAPECITABINE
     Indication: NASAL SINUS CANCER

REACTIONS (1)
  - Disease progression [Unknown]
